FAERS Safety Report 8919530 (Version 4)
Quarter: 2014Q2

REPORT INFORMATION
  Report Type: Spontaneous
  Country: US (occurrence: US)
  Receive Date: 20121121
  Receipt Date: 20140505
  Transmission Date: 20141212
  Serious: Yes (Hospitalization)
  Sender: FDA-Public Use
  Company Number: US-BAYER-2012-121137

PATIENT
  Age: 17 Year
  Sex: Female
  Weight: 61.22 kg

DRUGS (11)
  1. YAZ [Suspect]
     Indication: DYSMENORRHOEA
     Dosage: UNK
     Dates: start: 200702, end: 20070620
  2. FLORENT [Concomitant]
     Indication: BLOOD PRESSURE MANAGEMENT
     Dosage: UNK
     Route: 048
     Dates: start: 2005
  3. FLUDROCORTISONE [Concomitant]
     Dosage: 0.1 MG, UNK
     Dates: start: 20070517
  4. DICYCLOMINE [Concomitant]
     Dosage: 10 MG, UNK
     Route: 048
     Dates: start: 20070529
  5. AVELOX [Concomitant]
     Dosage: 400 MG, UNK
     Route: 048
     Dates: start: 20070529
  6. COLAZAL [Concomitant]
     Dosage: 750 MG, UNK
     Route: 048
     Dates: start: 20070602
  7. CIPROFLOXACIN HYDROCHLORIDE [Concomitant]
     Dosage: 500 MG, UNK
     Route: 048
     Dates: start: 20070602
  8. HYOSCYAMINE [Concomitant]
     Dosage: 0.125 MG, UNK
     Route: 048
     Dates: start: 20070602
  9. PEPTO-BISMOL [Concomitant]
     Route: 048
  10. PROTONIX [Concomitant]
     Route: 048
  11. BENTYL [Concomitant]
     Route: 048

REACTIONS (8)
  - Cerebrovascular accident [Recovering/Resolving]
  - Injury [None]
  - Pain [Recovering/Resolving]
  - General physical health deterioration [Recovering/Resolving]
  - Emotional distress [None]
  - Anxiety [None]
  - Pain [None]
  - Cerebral artery thrombosis [None]
